FAERS Safety Report 11474075 (Version 1)
Quarter: 2015Q3

REPORT INFORMATION
  Report Type: Spontaneous
  Country: US (occurrence: US)
  Receive Date: 20150908
  Receipt Date: 20150908
  Transmission Date: 20151125
  Serious: No
  Sender: FDA-Public Use
  Company Number: US-JAZZ-2013-US-000332

PATIENT
  Sex: Female

DRUGS (5)
  1. XYREM [Suspect]
     Active Substance: SODIUM OXYBATE
     Dosage: 3 G, BID
     Dates: start: 201009, end: 201011
  2. XYREM [Suspect]
     Active Substance: SODIUM OXYBATE
     Dosage: 3 G FIRST DOSE/1.5 GM SECOND DOSE
     Route: 048
     Dates: start: 200610, end: 200807
  3. XYREM [Suspect]
     Active Substance: SODIUM OXYBATE
     Dosage: 3.5G FIRST DOSE/2.5 G SECOND DOSE
     Route: 048
     Dates: start: 201301
  4. XYREM [Suspect]
     Active Substance: SODIUM OXYBATE
     Indication: NARCOLEPSY
     Dosage: 2.25 G, BID
     Route: 048
     Dates: start: 200606, end: 200610
  5. XYREM [Suspect]
     Active Substance: SODIUM OXYBATE
     Dosage: 3 G FIRST DOSE/2.25 G SECOND DOSE
     Route: 048
     Dates: start: 200807, end: 201009

REACTIONS (4)
  - Tendonitis [Not Recovered/Not Resolved]
  - Accident [Unknown]
  - Limb injury [Unknown]
  - Pain [Unknown]
